FAERS Safety Report 5094390-7 (Version None)
Quarter: 2006Q3

REPORT INFORMATION
  Report Type: 
  Country: None (occurrence: None)
  Receive Date: 20060731
  Receipt Date: 20060421
  Transmission Date: 20061208
  Serious: No
  Sender: FDA-Public Use
  Company Number: 2006PV012554

PATIENT
  Age: 39 Year
  Sex: Female
  Weight: 72.5755 kg

DRUGS (3)
  1. BYETTA [Suspect]
     Indication: DIABETES MELLITUS NON-INSULIN-DEPENDENT
     Dosage: 5 MCG; BID; SC
     Route: 058
     Dates: start: 20060405
  2. ORTHO CYCLEN-28 [Concomitant]
  3. SPRINTEC 28 [Concomitant]

REACTIONS (4)
  - ABDOMINAL DISTENSION [None]
  - METRORRHAGIA [None]
  - VOMITING [None]
  - WEIGHT DECREASED [None]
